FAERS Safety Report 25012196 (Version 1)
Quarter: 2025Q1

REPORT INFORMATION
  Report Type: Spontaneous
  Country: CZ (occurrence: CZ)
  Receive Date: 20250226
  Receipt Date: 20250226
  Transmission Date: 20250408
  Serious: Yes (Other)
  Sender: Unknown Manufacturer
  Company Number: None

PATIENT

DRUGS (1)
  1. METOPROLOL SUCCINATE [Suspect]
     Active Substance: METOPROLOL SUCCINATE
     Indication: Product used for unknown indication
     Route: 048
     Dates: start: 202409, end: 202411

REACTIONS (4)
  - Biliary obstruction [Not Recovered/Not Resolved]
  - Tension headache [Not Recovered/Not Resolved]
  - Hypertensive crisis [Not Recovered/Not Resolved]
  - Insomnia [Not Recovered/Not Resolved]

NARRATIVE: CASE EVENT DATE: 20241002
